FAERS Safety Report 10810660 (Version 1)
Quarter: 2015Q1

REPORT INFORMATION
  Report Type: Spontaneous
  Country: US (occurrence: None)
  Receive Date: 20150213
  Receipt Date: 20150213
  Transmission Date: 20150721
  Serious: Yes (Life-Threatening, Hospitalization)
  Sender: FDA-Public Use
  Company Number: None

PATIENT
  Age: 73 Year
  Sex: Male

DRUGS (4)
  1. INVANZ [Suspect]
     Active Substance: ERTAPENEM SODIUM
     Indication: LIVER ABSCESS
     Dosage: 1 GRAM ONCE A DAY INJECTION (INFUSION)
     Dates: start: 20150122, end: 20150123
  2. ATIVAN [Concomitant]
     Active Substance: LORAZEPAM
  3. INVANZ [Suspect]
     Active Substance: ERTAPENEM SODIUM
     Indication: CHOLECYSTITIS INFECTIVE
     Dosage: 1 GRAM ONCE A DAY INJECTION (INFUSION)
     Dates: start: 20150122, end: 20150123
  4. LODINE [Concomitant]
     Active Substance: ETODOLAC

REACTIONS (1)
  - Seizure [None]

NARRATIVE: CASE EVENT DATE: 20150123
